FAERS Safety Report 4424043-7 (Version None)
Quarter: 2004Q3

REPORT INFORMATION
  Report Type: 
  Country: None (occurrence: None)
  Receive Date: 20040809
  Receipt Date: 20040722
  Transmission Date: 20050211
  Serious: Yes (Hospitalization)
  Sender: FDA-Public Use
  Company Number: 2004225048JP

PATIENT
  Age: 35 Year
  Sex: Female

DRUGS (2)
  1. HALCION [Suspect]
     Dosage: 350 MG,SINGLE
  2. LUDIOMIL [Suspect]
     Dosage: 600 MG/DL, SINGLE

REACTIONS (5)
  - DRUG TOXICITY [None]
  - LOSS OF CONSCIOUSNESS [None]
  - SUICIDE ATTEMPT [None]
  - TORSADE DE POINTES [None]
  - VENTRICULAR ARRHYTHMIA [None]
